FAERS Safety Report 17343058 (Version 3)
Quarter: 2025Q2

REPORT INFORMATION
  Report Type: Spontaneous
  Country: US (occurrence: US)
  Receive Date: 20200129
  Receipt Date: 20250508
  Transmission Date: 20250716
  Serious: Yes (Death, Hospitalization)
  Sender: VERTEX
  Company Number: US-VERTEX PHARMACEUTICALS-2020-001476

PATIENT
  Age: 21 Year
  Sex: Male

DRUGS (15)
  1. SYMDEKO [Suspect]
     Active Substance: IVACAFTOR\TEZACAFTOR
     Indication: Cystic fibrosis
     Dosage: 100MG TEZACAFTOR / 150MG IVACAFTOR AM AND 150MG IVACAFTOR PM
     Route: 048
     Dates: start: 20190202, end: 20200114
  2. ADVAIR HFA [Concomitant]
     Active Substance: FLUTICASONE PROPIONATE\SALMETEROL XINAFOATE
  3. ALBUTEROL [Concomitant]
     Active Substance: ALBUTEROL
  4. CLARITHROMYCIN [Concomitant]
     Active Substance: CLARITHROMYCIN
  5. LEVOFLOXACIN [Concomitant]
     Active Substance: LEVOFLOXACIN
  6. PREDNISONE [Concomitant]
     Active Substance: PREDNISONE
  7. PULMOZYME [Concomitant]
     Active Substance: DORNASE ALFA
  8. PROAIR HFA [Concomitant]
     Active Substance: ALBUTEROL SULFATE
  9. RIFAMPIN [Concomitant]
     Active Substance: RIFAMPIN
  10. SULFAMETHOXAZOLE\TRIMETHOPRIM [Concomitant]
     Active Substance: SULFAMETHOXAZOLE\TRIMETHOPRIM
  11. ANCEF [Concomitant]
     Active Substance: CEFAZOLIN SODIUM
  12. ZITHROMAX [Concomitant]
     Active Substance: AZITHROMYCIN DIHYDRATE
  13. RIFADIN [Concomitant]
     Active Substance: RIFAMPIN
  14. MYCOSTATIN [Concomitant]
     Active Substance: NYSTATIN
  15. MYAMBUTOL [Concomitant]
     Active Substance: ETHAMBUTOL HYDROCHLORIDE

REACTIONS (2)
  - Pneumonia [Fatal]
  - Mycobacterium avium complex infection [Fatal]

NARRATIVE: CASE EVENT DATE: 20200114
